FAERS Safety Report 8079973-4 (Version None)
Quarter: 2012Q1

REPORT INFORMATION
  Report Type: 
  Country: None (occurrence: None)
  Receive Date: 20120128
  Receipt Date: 20110812
  Transmission Date: 20120608
  Serious: No
  Sender: FDA-Public Use
  Company Number: US-ABBOTT-11P-163-0843639-00

PATIENT
  Sex: Female

DRUGS (26)
  1. EFFEXOR [Concomitant]
     Indication: DEPRESSION
  2. HYDROCODONE BITARTRATE [Concomitant]
     Indication: PAIN
  3. LEUCOVORIN CALCIUM [Concomitant]
     Indication: PRODUCT USED FOR UNKNOWN INDICATION
     Dosage: WEEKLY, DAY AFTER TAKING METHOTREXATE
  4. UNKNOWN SLEEPING PILL [Concomitant]
     Indication: PRODUCT USED FOR UNKNOWN INDICATION
  5. RISPERIDONE [Concomitant]
     Indication: HALLUCINATION
  6. AMLODIPINE [Concomitant]
     Indication: HYPERTENSION
  7. FOLIC ACID [Concomitant]
     Indication: PRODUCT USED FOR UNKNOWN INDICATION
  8. M.V.I. [Concomitant]
     Indication: PRODUCT USED FOR UNKNOWN INDICATION
  9. HUMIRA [Suspect]
     Indication: RHEUMATOID ARTHRITIS
     Route: 058
     Dates: start: 20110501
  10. CORTISONE ACETATE [Concomitant]
     Indication: PRODUCT USED FOR UNKNOWN INDICATION
  11. DICLOFENAC [Concomitant]
     Indication: PAIN
  12. CODLIVER [Concomitant]
     Indication: PRODUCT USED FOR UNKNOWN INDICATION
  13. PREDNISONE TAB [Concomitant]
     Indication: RHEUMATOID ARTHRITIS
  14. RISPERDAL [Concomitant]
     Indication: MOOD ALTERED
  15. METHOTREXATE [Concomitant]
     Indication: INFLAMMATION
  16. RISPERIDONE [Concomitant]
     Indication: DEPRESSION
  17. ZOLPIDEM [Concomitant]
     Indication: INSOMNIA
  18. HUMIRA [Suspect]
     Route: 058
     Dates: start: 20110623
  19. EFFEXOR [Concomitant]
     Indication: ANXIETY
  20. VITAMIN B COMPLEX CAP [Concomitant]
     Indication: PRODUCT USED FOR UNKNOWN INDICATION
  21. RISPERDAL [Concomitant]
     Indication: SLEEP DISORDER
  22. IMMODIPINE [Concomitant]
     Indication: HYPERTENSION
  23. PLAQUENIL [Concomitant]
     Indication: RHEUMATOID ARTHRITIS
  24. CLONAZEPM [Concomitant]
     Indication: ANXIETY
  25. PRILOSEC [Concomitant]
     Indication: GASTROOESOPHAGEAL REFLUX DISEASE
  26. VITAMIN TAB [Concomitant]
     Indication: PRODUCT USED FOR UNKNOWN INDICATION

REACTIONS (7)
  - INJECTION SITE SWELLING [None]
  - RASH PAPULAR [None]
  - INJECTION SITE WARMTH [None]
  - INJECTION SITE PAIN [None]
  - INJECTION SITE PRURITUS [None]
  - FATIGUE [None]
  - INJECTION SITE ERYTHEMA [None]
